FAERS Safety Report 7327469-7 (Version None)
Quarter: 2011Q1

REPORT INFORMATION
  Report Type: 
  Country: None (occurrence: None)
  Receive Date: 20110303
  Receipt Date: 20110223
  Transmission Date: 20110831
  Serious: Yes (Other)
  Sender: FDA-Public Use
  Company Number: US-BIOGENIDEC-2011BI007095

PATIENT
  Sex: Female

DRUGS (1)
  1. AVONEX [Suspect]
     Indication: MULTIPLE SCLEROSIS
     Route: 030

REACTIONS (6)
  - HYPERTENSION [None]
  - MENSTRUATION IRREGULAR [None]
  - BLOOD COUNT ABNORMAL [None]
  - OVARIAN DISORDER [None]
  - NEOPLASM [None]
  - MENORRHAGIA [None]
